FAERS Safety Report 8746261 (Version 2)
Quarter: 2012Q4

REPORT INFORMATION
  Report Type: Report from Study
  Country: FR (occurrence: FR)
  Receive Date: 20120827
  Receipt Date: 20120907
  Transmission Date: 20130627
  Serious: Yes (Death, Hospitalization, Other)
  Sender: FDA-Public Use
  Company Number: FR-MILLENNIUM PHARMACEUTICALS, INC.-2012-05154

PATIENT

DRUGS (2)
  1. VELCADE [Suspect]
     Indication: MULTIPLE MYELOMA
     Route: 065
  2. MORPHINE SULFATE [Suspect]
     Indication: PAIN

REACTIONS (3)
  - Plasma cell myeloma [Fatal]
  - Arthralgia [Unknown]
  - Confusional state [Unknown]
